FAERS Safety Report 12348874 (Version 3)
Quarter: 2016Q3

REPORT INFORMATION
  Report Type: Report from Study
  Country: CO (occurrence: CO)
  Receive Date: 20160509
  Receipt Date: 20160922
  Transmission Date: 20161109
  Serious: Yes (Other)
  Sender: FDA-Public Use
  Company Number: PHHY2016CO061780

PATIENT
  Sex: Female
  Weight: 68 kg

DRUGS (2)
  1. VOTRIENT [Suspect]
     Active Substance: PAZOPANIB HYDROCHLORIDE
     Indication: RENAL CELL CARCINOMA
     Dosage: 400 MG, BID
     Route: 048
     Dates: start: 20150929
  2. VOTRIENT [Suspect]
     Active Substance: PAZOPANIB HYDROCHLORIDE
     Dosage: 800 MG, QD
     Route: 048

REACTIONS (10)
  - Skin discolouration [Unknown]
  - Headache [Unknown]
  - Haemorrhage [Unknown]
  - Onychoclasis [Unknown]
  - Thyroid disorder [Unknown]
  - Vomiting [Unknown]
  - Skin sensitisation [Unknown]
  - Diarrhoea [Unknown]
  - Abasia [Unknown]
  - Alopecia [Unknown]
